FAERS Safety Report 7599841-1 (Version None)
Quarter: 2011Q3

REPORT INFORMATION
  Report Type: 
  Country: None (occurrence: None)
  Receive Date: 20110711
  Receipt Date: 20110624
  Transmission Date: 20111222
  Serious: Yes (Death, Hospitalization, Other)
  Sender: FDA-Public Use
  Company Number: US-BAYER-200923607NA

PATIENT
  Age: 73 Year
  Sex: Male
  Weight: 68.49 kg

DRUGS (34)
  1. VASOTEC [Concomitant]
     Dosage: 20 MG, UNK
     Route: 048
     Dates: start: 20070531
  2. DIGOXIN ALMUS [Concomitant]
     Dosage: 0.25 MG, UNK
     Route: 048
     Dates: start: 20070604
  3. HEPARIN [Concomitant]
     Dosage: 53000 U, UNK
     Route: 042
     Dates: start: 20070814
  4. INSULIN 2 [Concomitant]
     Dosage: 10 U, UNK
     Route: 042
     Dates: start: 20070814
  5. MANNITOL [Concomitant]
     Dosage: 12.5 G, UNK
     Dates: start: 20070814
  6. TRASYLOL [Suspect]
     Indication: CORONARY ARTERY BYPASS
     Dosage: 200 ML/HR
     Route: 042
     Dates: start: 20070814, end: 20070814
  7. TOPROL-XL [Concomitant]
     Dosage: 100 MG, UNK
     Route: 048
     Dates: start: 20070531
  8. LASIX [Concomitant]
     Dosage: 40 MG, UNK
     Route: 048
     Dates: start: 20070602
  9. AMLODIPINE [Concomitant]
     Dosage: 5 MG, UNK
     Route: 048
     Dates: start: 20070604
  10. SOLU-CORTEF [Concomitant]
     Dosage: 125 MG, UNK
     Route: 042
     Dates: start: 20070814
  11. DOBUTAMINE HCL [Concomitant]
     Dosage: 5 MCG/KG MINUTE
     Route: 042
     Dates: start: 20070814
  12. ZINACEF [Concomitant]
     Dosage: 1.5 UNK
     Route: 042
     Dates: start: 20070814
  13. ATIVAN [Concomitant]
     Dosage: 0.25 MG, QD
     Route: 048
  14. TRASYLOL [Suspect]
     Indication: AORTIC SURGERY
     Dosage: 200 ML/HR
     Route: 042
     Dates: start: 20070814, end: 20070814
  15. ISOSORBIDE MONONITRATE [Concomitant]
     Dosage: UNK
     Dates: start: 20070514
  16. ASPIRIN [Concomitant]
     Dosage: 81 MG, UNK
     Route: 048
     Dates: start: 20070531
  17. DIOVAN HCT [Concomitant]
     Dosage: 80 MG, UNK
     Route: 048
     Dates: start: 20070602
  18. HEPARIN [Concomitant]
     Dosage: 2000 U, UNK
     Dates: start: 20070814
  19. ALBUMIN (HUMAN) [Concomitant]
     Dosage: 200 ML, UNK
     Dates: start: 20070814
  20. IMDUR [Concomitant]
     Dosage: 30 MG, UNK
     Route: 048
     Dates: start: 20070531
  21. NITROGLYCERIN [Concomitant]
     Dosage: 6.4 MG, UNK
     Route: 048
     Dates: start: 20070604
  22. PROPOFOL [Concomitant]
     Dosage: 300 MG, UNK
     Route: 042
     Dates: start: 20070814
  23. KANAMYCIN [Concomitant]
     Dosage: 1 G, UNK
     Dates: start: 20070814
  24. PIRACETAM [Concomitant]
     Dosage: 800 MG, BID
     Route: 048
  25. CITROCHOLINE [Concomitant]
     Dosage: 250 MG, PRN
  26. ENALAPRIL 1A PHARMA GMBH [Concomitant]
  27. VERSED [Concomitant]
     Dosage: 2 MG, UNK
     Route: 042
     Dates: start: 20070814
  28. SINEMET [Concomitant]
     Dosage: 25/100
     Route: 048
     Dates: start: 20070531
  29. FENTANYL [Concomitant]
     Dosage: 1000 MG, UNK
     Route: 042
     Dates: start: 20070814
  30. LEVODOPA [Concomitant]
     Route: 048
  31. CIPROFLOXACIN [Concomitant]
     Dosage: UNK
     Route: 048
     Dates: start: 20070514
  32. MIDAZOLAM HCL [Concomitant]
     Dosage: 20 MG, UNK
     Route: 042
     Dates: start: 20070814
  33. PROTAMINE SULFATE [Concomitant]
     Dosage: 850 MG, UNK
     Route: 042
     Dates: start: 20070814
  34. CITROCHOLINE [Concomitant]
     Dosage: 250 MG, QD
     Route: 048

REACTIONS (9)
  - UNEVALUABLE EVENT [None]
  - DEPRESSION [None]
  - RENAL FAILURE ACUTE [None]
  - PLEURAL EFFUSION [None]
  - RENAL FAILURE CHRONIC [None]
  - PAIN [None]
  - INJURY [None]
  - EMOTIONAL DISTRESS [None]
  - INSOMNIA [None]
